FAERS Safety Report 9185709 (Version 1)
Quarter: 2013Q1

REPORT INFORMATION
  Report Type: Spontaneous
  Country: CH (occurrence: None)
  Receive Date: 20130321
  Receipt Date: 20130321
  Transmission Date: 20140127
  Serious: Yes (Other)
  Sender: FDA-Public Use
  Company Number: VAL_02224_2013

PATIENT
  Sex: 0

DRUGS (2)
  1. METOPROLOL [Suspect]
     Indication: PRODUCT USED FOR UNKNOWN INDICATION
     Dosage: DF (WEEKS OF GESTATION 0-4) TRANSPLACENTAL
     Route: 064
  2. PRAVASTATIN [Suspect]
     Route: 064

REACTIONS (2)
  - Inguinal hernia [None]
  - Maternal drugs affecting foetus [None]
